FAERS Safety Report 23093078 (Version 4)
Quarter: 2023Q4

REPORT INFORMATION
  Report Type: Spontaneous
  Country: IL (occurrence: IL)
  Receive Date: 20231021
  Receipt Date: 20231222
  Transmission Date: 20240109
  Serious: Yes (Hospitalization)
  Sender: FDA-Public Use
  Company Number: IL-ALXN-A202313745

PATIENT
  Age: 2 Year
  Sex: Male
  Weight: 15 kg

DRUGS (3)
  1. KANUMA [Suspect]
     Active Substance: SEBELIPASE ALFA
     Indication: Lysosomal acid lipase deficiency
     Dosage: UNK, QW
     Route: 042
     Dates: start: 202105
  2. KANUMA [Suspect]
     Active Substance: SEBELIPASE ALFA
     Dosage: 3.2 MG/KG, QW
     Route: 065
  3. KANUMA [Suspect]
     Active Substance: SEBELIPASE ALFA
     Dosage: 5 MILLIGRAM/KILOGRAM, QW
     Route: 065

REACTIONS (3)
  - Blood lactate dehydrogenase increased [Not Recovered/Not Resolved]
  - Lipogranuloma [Not Recovered/Not Resolved]
  - Off label use [Unknown]

NARRATIVE: CASE EVENT DATE: 20230905
